FAERS Safety Report 16600409 (Version 1)
Quarter: 2019Q3

REPORT INFORMATION
  Report Type: Spontaneous
  Country: FR (occurrence: FR)
  Receive Date: 20190720
  Receipt Date: 20190720
  Transmission Date: 20191004
  Serious: Yes (Hospitalization, Disabling)
  Sender: FDA-Public Use
  Company Number: FR-ACCORD-139198

PATIENT
  Age: 48 Year
  Sex: Male
  Weight: 69 kg

DRUGS (15)
  1. LYRICA [Concomitant]
     Active Substance: PREGABALIN
  2. ZOPHREN [Concomitant]
     Active Substance: ONDANSETRON
  3. MORPHINE [Suspect]
     Active Substance: MORPHINE
     Indication: PAIN
     Route: 040
     Dates: start: 20181005, end: 20181005
  4. LAROXYL [Concomitant]
     Active Substance: AMITRIPTYLINE HYDROCHLORIDE
  5. MOVICOL [Concomitant]
     Active Substance: POLYETHYLENE GLYCOL 3350\POTASSIUM CHLORIDE\SODIUM BICARBONATE\SODIUM CHLORIDE
  6. PANTOPRAZOLE [Concomitant]
     Active Substance: PANTOPRAZOLE
  7. DOXYCYCLINE. [Concomitant]
     Active Substance: DOXYCYCLINE
  8. CISPLATINE MYLAN [Suspect]
     Active Substance: CISPLATIN
     Indication: SQUAMOUS CELL CARCINOMA OF THE HYPOPHARYNX
     Route: 042
     Dates: start: 20180924, end: 20180924
  9. DEROXAT [Concomitant]
     Active Substance: PAROXETINE HYDROCHLORIDE
  10. TIORFAN [Concomitant]
     Active Substance: RACECADOTRIL
  11. ERBITUX [Suspect]
     Active Substance: CETUXIMAB
     Indication: SQUAMOUS CELL CARCINOMA OF THE HYPOPHARYNX
     Route: 042
     Dates: start: 20181001, end: 20181001
  12. FLUOROURACIL ACCORD [Suspect]
     Active Substance: FLUOROURACIL
     Indication: SQUAMOUS CELL CARCINOMA OF THE HYPOPHARYNX
     Route: 042
     Dates: start: 20180924, end: 20180924
  13. ZARZIO [Concomitant]
     Active Substance: FILGRASTIM
  14. ERBITUX [Suspect]
     Active Substance: CETUXIMAB
     Indication: SQUAMOUS CELL CARCINOMA OF THE HYPOPHARYNX
     Route: 042
     Dates: start: 20180924, end: 20180924
  15. NORMACOL [Concomitant]
     Active Substance: HERBALS\KARAYA GUM

REACTIONS (3)
  - Distal intestinal obstruction syndrome [Recovered/Resolved with Sequelae]
  - Pneumonia aspiration [Recovered/Resolved with Sequelae]
  - Acute kidney injury [Recovered/Resolved with Sequelae]

NARRATIVE: CASE EVENT DATE: 20181005
